FAERS Safety Report 5495444-3 (Version None)
Quarter: 2007Q4

REPORT INFORMATION
  Report Type: 
  Country: None (occurrence: None)
  Receive Date: 20071023
  Receipt Date: 20071010
  Transmission Date: 20080405
  Serious: Yes (Other)
  Sender: FDA-Public Use
  Company Number: 2007BI018842

PATIENT
  Sex: Female

DRUGS (1)
  1. ZEVALIN [Suspect]
     Indication: DIFFUSE LARGE B-CELL LYMPHOMA
     Dosage: ; IV
     Route: 042
     Dates: start: 20070829, end: 20070829

REACTIONS (1)
  - UNEVALUABLE EVENT [None]
